FAERS Safety Report 21921287 (Version 2)
Quarter: 2023Q2

REPORT INFORMATION
  Report Type: Spontaneous
  Country: US (occurrence: US)
  Receive Date: 20230127
  Receipt Date: 20230630
  Transmission Date: 20230722
  Serious: Yes (Death, Other)
  Sender: FDA-Public Use
  Company Number: US-JAZZ-2023-US-001731

PATIENT
  Age: 31 Year
  Sex: Male

DRUGS (1)
  1. EPIDIOLEX [Suspect]
     Active Substance: CANNABIDIOL
     Indication: Seizure
     Dosage: 800 MILLIGRAM BID
     Route: 048
     Dates: start: 20210705

REACTIONS (1)
  - Death [Fatal]

NARRATIVE: CASE EVENT DATE: 20230112
